FAERS Safety Report 8547131-2 (Version None)
Quarter: 2012Q3

REPORT INFORMATION
  Report Type: 
  Country: None (occurrence: None)
  Receive Date: 20120727
  Receipt Date: 20120220
  Transmission Date: 20120928
  Serious: No
  Sender: FDA-Public Use
  Company Number: US-ASTRAZENECA-2012SE11489

PATIENT
  Sex: Female

DRUGS (7)
  1. SEROQUEL [Suspect]
     Route: 048
     Dates: start: 20120124, end: 20120124
  2. SEROQUEL [Suspect]
     Route: 048
     Dates: start: 20120101, end: 20120101
  3. SEROQUEL [Suspect]
     Route: 048
     Dates: start: 20120101, end: 20120101
  4. SEROQUEL [Suspect]
     Route: 048
     Dates: start: 20120125, end: 20120126
  5. SEROQUEL [Suspect]
     Route: 048
     Dates: start: 20120120, end: 20120101
  6. ANTIHISTAMINES [Concomitant]
  7. SEROQUEL [Suspect]
     Indication: AFFECTIVE DISORDER
     Route: 048
     Dates: start: 20120101, end: 20120101

REACTIONS (7)
  - ADVERSE DRUG REACTION [None]
  - WRONG TECHNIQUE IN DRUG USAGE PROCESS [None]
  - SOMNOLENCE [None]
  - HEADACHE [None]
  - RESTLESS LEGS SYNDROME [None]
  - OFF LABEL USE [None]
  - DRUG WITHDRAWAL HEADACHE [None]
